FAERS Safety Report 20672392 (Version 2)
Quarter: 2022Q2

REPORT INFORMATION
  Report Type: Spontaneous
  Country: FR (occurrence: FR)
  Receive Date: 20220405
  Receipt Date: 20220502
  Transmission Date: 20220721
  Serious: Yes (Death, Other)
  Sender: FDA-Public Use
  Company Number: FR-ROCHE-3056842

PATIENT
  Age: 51 Year
  Sex: Male

DRUGS (10)
  1. BEVACIZUMAB [Suspect]
     Active Substance: BEVACIZUMAB
     Indication: Non-small cell lung cancer
     Dosage: 975 MILLIGRAM (EVERY 1 CYCLE(S) DAY1 OF CYCLE OF 21 DAYS THE MOST LAST RECENT DOSE WAS 13/SEP/2021)
     Route: 042
     Dates: start: 20210913, end: 20210913
  2. BEVACIZUMAB [Suspect]
     Active Substance: BEVACIZUMAB
     Dosage: 1095 MILLIGRAM (EVERY 1 CYCLE(S) DAY1 OF CYCLE OF 21 DAYS THE MOST LAST RECENT DOSE WAS 23/AUG/2021)
     Route: 042
     Dates: start: 20210823, end: 20210823
  3. ATEZOLIZUMAB [Suspect]
     Active Substance: ATEZOLIZUMAB
     Indication: Non-small cell lung cancer
     Dosage: EVERY 1 CYCLE(S) DAY1 OF CYCLE OF 21 DAYS THE MOST LAST RECENT DOSE WAS ON 13/SEP/2021
     Route: 041
     Dates: start: 20210823, end: 20210913
  4. SERETIDE [Concomitant]
     Active Substance: FLUTICASONE PROPIONATE\SALMETEROL XINAFOATE
     Indication: Asthma
     Dosage: UNK
  5. MONTELUKAST [Concomitant]
     Active Substance: MONTELUKAST SODIUM
     Indication: Asthma
     Dosage: EVERY 1 DAYS
     Route: 048
  6. CISPLATIN [Concomitant]
     Active Substance: CISPLATIN
     Indication: Non-small cell lung cancer
     Dosage: EVERY 1 CYCLE(S) DAY1 OF CYCLE OF 21 DAYS
     Route: 042
     Dates: start: 20210823, end: 20210823
  7. CISPLATIN [Concomitant]
     Active Substance: CISPLATIN
     Dosage: EVERY 1 CYCLE(S) DAY1 OF CYCLE OF 21 DAYS
     Route: 042
     Dates: start: 20210913, end: 20210913
  8. PEMETREXED [Concomitant]
     Active Substance: PEMETREXED
     Indication: Non-small cell lung cancer
     Dosage: EVERY 1 CYCLE(S) DAY1 OF CYCLE OF 21 DAYS
     Route: 042
     Dates: start: 20210823, end: 20210823
  9. PEMETREXED [Concomitant]
     Active Substance: PEMETREXED
     Dosage: EVERY 1 CYCLE(S) DAY1 OF CYCLE OF 21 DAYS
     Route: 042
     Dates: start: 20210913, end: 20210913
  10. LISINOPRIL [Concomitant]
     Active Substance: LISINOPRIL
     Indication: Hypertension
     Dosage: 20 MILLIGRAM, QD
     Route: 048

REACTIONS (2)
  - Cerebral thrombosis [Unknown]
  - Death [Fatal]

NARRATIVE: CASE EVENT DATE: 20211004
